FAERS Safety Report 8555271-7 (Version None)
Quarter: 2012Q3

REPORT INFORMATION
  Report Type: 
  Country: None (occurrence: None)
  Receive Date: 20120731
  Receipt Date: 20120208
  Transmission Date: 20120928
  Serious: No
  Sender: FDA-Public Use
  Company Number: US-ASTRAZENECA-2011SE63076

PATIENT
  Age: 22 Year
  Sex: Male
  Weight: 65.8 kg

DRUGS (6)
  1. SEROQUEL [Suspect]
     Indication: BIPOLAR DISORDER
     Route: 048
     Dates: start: 20050101
  2. SEROQUEL [Suspect]
     Indication: LEARNING DISORDER
     Route: 048
     Dates: start: 20050101
  3. TRILEPTAL [Concomitant]
     Indication: BIPOLAR DISORDER
  4. SLEEPING PILLS [Concomitant]
     Indication: SLEEP DISORDER
  5. SEROQUEL [Suspect]
     Route: 048
     Dates: start: 20050101
  6. SEROQUEL [Suspect]
     Route: 048
     Dates: start: 20050101

REACTIONS (8)
  - PSYCHOTIC DISORDER [None]
  - DRUG DOSE OMISSION [None]
  - INSOMNIA [None]
  - ABDOMINAL DISCOMFORT [None]
  - CHEST PAIN [None]
  - NAUSEA [None]
  - HALLUCINATION [None]
  - OFF LABEL USE [None]
